FAERS Safety Report 24198418 (Version 1)
Quarter: 2024Q3

REPORT INFORMATION
  Report Type: Spontaneous
  Country: DE (occurrence: DE)
  Receive Date: 20240812
  Receipt Date: 20240812
  Transmission Date: 20241017
  Serious: Yes (Other)
  Sender: DR REDDYS
  Company Number: None

PATIENT
  Age: 66 Year
  Sex: Female

DRUGS (1)
  1. VENLAFAXINE HYDROCHLORIDE [Suspect]
     Active Substance: VENLAFAXINE HYDROCHLORIDE
     Indication: Depression
     Route: 048

REACTIONS (1)
  - Stress cardiomyopathy [Unknown]

NARRATIVE: CASE EVENT DATE: 20240726
